FAERS Safety Report 8216564-6 (Version None)
Quarter: 2012Q1

REPORT INFORMATION
  Report Type: 
  Country: None (occurrence: None)
  Receive Date: 20120316
  Receipt Date: 20120314
  Transmission Date: 20120608
  Serious: Yes (Death, Hospitalization)
  Sender: FDA-Public Use
  Company Number: PHHY2012GB022672

PATIENT
  Age: 80 Year
  Sex: Female
  Weight: 33 kg

DRUGS (7)
  1. ASPIRIN [Suspect]
     Dosage: 75 MG, UNK
     Route: 048
  2. CITALOPRAM HYDROBROMIDE [Suspect]
     Indication: DEPRESSION
     Dosage: 20 MG, UNK
     Route: 048
     Dates: start: 20101207
  3. NUTRITION SUPPLEMENTS [Concomitant]
  4. RISEDRONIC ACID [Concomitant]
  5. DONEPEZIL HCL [Suspect]
     Indication: DEMENTIA ALZHEIMER'S TYPE
     Dosage: 10 MG, UNK
     Route: 048
     Dates: start: 20110407
  6. CODEINE PHOSPHATE [Concomitant]
  7. CALCIUM CARBONATE [Concomitant]

REACTIONS (4)
  - DEATH [None]
  - GASTRIC ULCER [None]
  - ASTHENIA [None]
  - GASTROINTESTINAL HAEMORRHAGE [None]
